FAERS Safety Report 4492980-3 (Version None)
Quarter: 2004Q4

REPORT INFORMATION
  Report Type: 
  Country: None (occurrence: None)
  Receive Date: 20041102
  Receipt Date: 20041015
  Transmission Date: 20050328
  Serious: Yes (Life-Threatening, Hospitalization)
  Sender: FDA-Public Use
  Company Number: 20940

PATIENT
  Age: 64 Year
  Sex: Male

DRUGS (5)
  1. FLECAINE (FLECAINIDE ACETATE) [Suspect]
     Dosage: ORAL
     Route: 048
     Dates: start: 20021005, end: 20021007
  2. ACUPAN [Suspect]
     Dosage: 60 MG  INTRAVENOUS
     Route: 042
     Dates: start: 20021005, end: 20021007
  3. KETOPROFEN [Suspect]
     Dosage: INTRAVENOUS
     Route: 042
  4. VISCERALGINE FORTE INJECTION (TIEMONIUM, NORAMIDOPYRINE) [Suspect]
     Dosage: 15 MG INTRAVENOUS
     Route: 042
     Dates: start: 20021006, end: 20021007
  5. VISCERALGINE (TIEMONIUM) [Suspect]
     Dosage: INTRAVENOUS
     Route: 042

REACTIONS (6)
  - ACUTE RESPIRATORY DISTRESS SYNDROME [None]
  - CARDIOGENIC SHOCK [None]
  - INTESTINAL DILATATION [None]
  - INTESTINAL ISCHAEMIA [None]
  - LEUKOPENIA [None]
  - RENAL FAILURE ACUTE [None]
